FAERS Safety Report 21896116 (Version 2)
Quarter: 2023Q1

REPORT INFORMATION
  Report Type: Other
  Country: US (occurrence: None)
  Receive Date: 20230123
  Receipt Date: 20230126
  Transmission Date: 20230418
  Serious: Yes (Death)
  Sender: FDA-Public Use
  Company Number: US-ROCHE-3268375

PATIENT
  Age: 48 Year
  Sex: Female

DRUGS (1)
  1. OCREVUS [Suspect]
     Active Substance: OCRELIZUMAB
     Indication: Multiple sclerosis
     Dosage: INFUSE 600MG INTRAVENOUSLY EVERY 6 MONTHS
     Route: 042

REACTIONS (1)
  - Death [Fatal]
